APPROVED DRUG PRODUCT: CIPROFLOXACIN HYDROCHLORIDE
Active Ingredient: CIPROFLOXACIN HYDROCHLORIDE
Strength: EQ 0.3% BASE
Dosage Form/Route: SOLUTION/DROPS;OPHTHALMIC
Application: A204613 | Product #001 | TE Code: AT
Applicant: ALTAIRE PHARMACEUTICALS INC
Approved: May 3, 2018 | RLD: No | RS: No | Type: RX